FAERS Safety Report 10574673 (Version 1)
Quarter: 2014Q4

REPORT INFORMATION
  Report Type: Spontaneous
  Country: IT (occurrence: IT)
  Receive Date: 20141110
  Receipt Date: 20141110
  Transmission Date: 20150529
  Serious: Yes (Hospitalization)
  Sender: FDA-Public Use
  Company Number: IT-PFIZER INC-2014307444

PATIENT
  Age: 51 Year
  Sex: Male

DRUGS (4)
  1. CITALOPRAM [Suspect]
     Active Substance: CITALOPRAM HYDROBROMIDE
     Dosage: 200 MG, TOTAL
     Route: 048
     Dates: start: 20140821, end: 20140821
  2. DEPAKENE [Suspect]
     Active Substance: VALPROIC ACID
     Dosage: 10 DF, TOTAL
     Route: 048
     Dates: start: 20140821, end: 20140821
  3. XANAX [Suspect]
     Active Substance: ALPRAZOLAM
     Dosage: 20 ML, TOTAL
     Route: 048
     Dates: start: 20140821, end: 20140821
  4. EN [Suspect]
     Active Substance: DELORAZEPAM
     Dosage: 10 ML, TOTAL
     Route: 048
     Dates: start: 20140821, end: 20140821

REACTIONS (3)
  - Vomiting [Recovering/Resolving]
  - Asthenia [Recovering/Resolving]
  - Drug abuse [Recovering/Resolving]

NARRATIVE: CASE EVENT DATE: 20140821
